FAERS Safety Report 20224409 (Version 1)
Quarter: 2021Q4

REPORT INFORMATION
  Report Type: Spontaneous
  Country: US (occurrence: None)
  Receive Date: 20211223
  Receipt Date: 20211223
  Transmission Date: 20220304
  Serious: Yes (Hospitalization)
  Sender: FDA-Public Use
  Company Number: None

PATIENT
  Age: 69 Year
  Sex: Female

DRUGS (1)
  1. CASIRIVIMAB\IMDEVIMAB [Suspect]
     Active Substance: CASIRIVIMAB\IMDEVIMAB
     Indication: COVID-19
     Route: 058
     Dates: start: 20211215

REACTIONS (9)
  - Nausea [None]
  - Asthenia [None]
  - Decreased appetite [None]
  - Hypertension [None]
  - Diabetic ketoacidosis [None]
  - Hypophagia [None]
  - Blood potassium decreased [None]
  - Fibrin D dimer increased [None]
  - Therapy interrupted [None]

NARRATIVE: CASE EVENT DATE: 20211220
